FAERS Safety Report 7250798-2 (Version None)
Quarter: 2011Q1

REPORT INFORMATION
  Report Type: 
  Country: None (occurrence: None)
  Receive Date: 20110128
  Receipt Date: 20110119
  Transmission Date: 20110831
  Serious: Yes (Death, Hospitalization, Other)
  Sender: FDA-Public Use
  Company Number: FR-BRISTOL-MYERS SQUIBB COMPANY-15502453

PATIENT
  Age: 83 Year
  Sex: Female
  Weight: 67 kg

DRUGS (15)
  1. LEVOTHYROX [Concomitant]
     Dosage: 1 DF: 100 UNIT NOS
  2. AMLOR [Concomitant]
  3. CORDARONE [Concomitant]
  4. TARDYFERON [Concomitant]
  5. FLAGYL [Interacting]
     Indication: COLITIS
     Route: 048
     Dates: start: 20101022, end: 20101108
  6. FOLIC ACID [Concomitant]
  7. BISOPROLOL [Concomitant]
  8. ACETAMINOPHEN [Concomitant]
     Dosage: 1 DF: 2 TO 8 CAPSULES
  9. IMOVANE [Concomitant]
  10. ACUPAN [Concomitant]
     Dosage: 1 DF: 1 VIAL
  11. NEXIUM [Concomitant]
  12. PLAVIX [Concomitant]
  13. TAHOR [Concomitant]
  14. FORLAX [Concomitant]
     Dosage: 1 DF: 1 TO 2 SACHETS
  15. COUMADIN [Suspect]
     Indication: ATRIAL FIBRILLATION
     Dosage: 2MG 1.5/D
     Route: 048
     Dates: end: 20101026

REACTIONS (10)
  - DEHYDRATION [None]
  - COLITIS [None]
  - DRUG INTERACTION [None]
  - RENAL FAILURE [None]
  - INFLAMMATION [None]
  - INTERNATIONAL NORMALISED RATIO INCREASED [None]
  - BLOOD SODIUM DECREASED [None]
  - ANAEMIA [None]
  - DIARRHOEA HAEMORRHAGIC [None]
  - BLOOD POTASSIUM INCREASED [None]
